FAERS Safety Report 5092800-2 (Version None)
Quarter: 2006Q3

REPORT INFORMATION
  Report Type: 
  Country: None (occurrence: None)
  Receive Date: 20060828
  Receipt Date: 20060821
  Transmission Date: 20061208
  Serious: Yes (Other)
  Sender: FDA-Public Use
  Company Number: 163-20785-06081046

PATIENT
  Age: 44 Year
  Sex: Female

DRUGS (2)
  1. THALOMID [Suspect]
     Indication: MULTIPLE MYELOMA
     Dosage: 50-200 MG, 1 IN 1 D; SEE IMAGE
     Route: 048
     Dates: start: 20060705, end: 20060801
  2. THALOMID [Suspect]
     Indication: MULTIPLE MYELOMA
     Dosage: 50-200 MG, 1 IN 1 D; SEE IMAGE
     Route: 048
     Dates: start: 20041022

REACTIONS (1)
  - BLOOD HUMAN CHORIONIC GONADOTROPIN INCREASED [None]
